FAERS Safety Report 11882856 (Version 2)
Quarter: 2016Q1

REPORT INFORMATION
  Report Type: Spontaneous
  Country: ES (occurrence: ES)
  Receive Date: 20151231
  Receipt Date: 20160322
  Transmission Date: 20160526
  Serious: Yes (Hospitalization, Other)
  Sender: FDA-Public Use
  Company Number: ES-SA-2015SA219341

PATIENT
  Sex: Male

DRUGS (4)
  1. INSULIN DETEMIR [Suspect]
     Active Substance: INSULIN DETEMIR
     Route: 065
  2. INSULIN [Concomitant]
     Active Substance: INSULIN NOS
  3. NOVOMIX [Concomitant]
     Active Substance: INSULIN ASPART
  4. LANTUS [Suspect]
     Active Substance: INSULIN GLARGINE
     Route: 065

REACTIONS (4)
  - Pneumonitis [Unknown]
  - Bronchospasm [Unknown]
  - Dyspnoea [Unknown]
  - Eosinophilia [Unknown]
